FAERS Safety Report 4444910-8 (Version None)
Quarter: 2004Q3

REPORT INFORMATION
  Report Type: 
  Country: None (occurrence: None)
  Receive Date: 20040909
  Receipt Date: 20040907
  Transmission Date: 20050211
  Serious: Yes (Hospitalization)
  Sender: FDA-Public Use
  Company Number: FR-GLAXOSMITHKLINE-B0344618A

PATIENT
  Age: 74 Year
  Sex: Male

DRUGS (4)
  1. CLAMOXYL [Suspect]
     Dosage: 6G PER DAY
     Route: 048
     Dates: start: 20040616
  2. FUSIDIC ACID [Suspect]
     Dosage: 4UNIT PER DAY
     Route: 048
     Dates: start: 20040616
  3. LEVOTHYROXINE SODIUM [Suspect]
     Indication: HYPOTHYROIDISM
     Dosage: 150MCG PER DAY
     Route: 048
     Dates: start: 19940101
  4. RIFADIN [Suspect]
     Dosage: 300MG THREE TIMES PER DAY
     Route: 048
     Dates: start: 20040616, end: 20040722

REACTIONS (7)
  - ASTHENIA [None]
  - DYSPNOEA [None]
  - EXTRASYSTOLES [None]
  - MALAISE [None]
  - PHOSPHENES [None]
  - VENTRICULAR EXTRASYSTOLES [None]
  - VERTIGO [None]
